FAERS Safety Report 19694462 (Version 1)
Quarter: 2021Q3

REPORT INFORMATION
  Report Type: Spontaneous
  Country: CZ (occurrence: CZ)
  Receive Date: 20210812
  Receipt Date: 20210812
  Transmission Date: 20211014
  Serious: Yes (Other)
  Sender: FDA-Public Use
  Company Number: NVSC2021CZ179108

PATIENT
  Sex: Male

DRUGS (9)
  1. GENTADEX [Concomitant]
     Active Substance: DEXAMETHASONE SODIUM PHOSPHATE\GENTAMICIN SULFATE
     Indication: HEADACHE
  2. IMUNOR [Concomitant]
     Active Substance: UNSPECIFIED INGREDIENT
     Indication: IMMUNODEFICIENCY
     Dosage: UNK
     Route: 065
  3. AMOXICLAV [Concomitant]
     Active Substance: AMOXICILLIN\CLAVULANATE POTASSIUM
     Indication: TOOTH FRACTURE
     Dosage: UNK (FOR A WEEK)
     Route: 065
  4. GENTADEX [Concomitant]
     Active Substance: DEXAMETHASONE SODIUM PHOSPHATE\GENTAMICIN SULFATE
     Indication: EAR PAIN
  5. METHOTREXATE. [Suspect]
     Active Substance: METHOTREXATE
     Indication: PRODUCT USED FOR UNKNOWN INDICATION
     Dosage: UNK
     Route: 065
  6. CLOTRIMAZOLE. [Concomitant]
     Active Substance: CLOTRIMAZOLE
     Indication: CANDIDA INFECTION
     Dosage: UNK
     Route: 065
  7. GENTADEX [Concomitant]
     Active Substance: DEXAMETHASONE SODIUM PHOSPHATE\GENTAMICIN SULFATE
     Indication: MIDDLE EAR INFLAMMATION
     Dosage: UNK
     Route: 065
  8. GENTADEX [Concomitant]
     Active Substance: DEXAMETHASONE SODIUM PHOSPHATE\GENTAMICIN SULFATE
     Indication: EYE PAIN
  9. FLUCONAZOLE. [Concomitant]
     Active Substance: FLUCONAZOLE
     Indication: PRODUCT USED FOR UNKNOWN INDICATION
     Dosage: 100 MG, BID
     Route: 065

REACTIONS (5)
  - Joint effusion [Unknown]
  - Joint swelling [Unknown]
  - Tonsillitis [Unknown]
  - Arthritis [Unknown]
  - Drug ineffective [Unknown]
